FAERS Safety Report 7120303-X (Version None)
Quarter: 2010Q4

REPORT INFORMATION
  Report Type: 
  Country: None (occurrence: None)
  Receive Date: 20101123
  Receipt Date: 20101117
  Transmission Date: 20110411
  Serious: Yes (Hospitalization)
  Sender: FDA-Public Use
  Company Number: GB-BRISTOL-MYERS SQUIBB COMPANY-15390537

PATIENT
  Age: 63 Year
  Sex: Male
  Weight: 123 kg

DRUGS (9)
  1. ATENOLOL [Suspect]
     Route: 065
  2. IRBESARTAN [Suspect]
     Route: 065
  3. EXENATIDE [Suspect]
     Indication: TYPE 2 DIABETES MELLITUS
     Dosage: INCREASED TO 10MCG TWICE DAILY
     Route: 065
  4. AMLODIPINE [Suspect]
     Route: 065
  5. RAMIPRIL [Suspect]
     Route: 065
  6. LEVEMIR [Concomitant]
     Indication: TYPE 2 DIABETES MELLITUS
     Dosage: 1DF= 100 UNITS
     Route: 065
  7. METFORMIN HCL [Concomitant]
     Indication: TYPE 2 DIABETES MELLITUS
     Route: 065
  8. FRUSEMIDE [Concomitant]
     Route: 065
  9. GLICLAZIDE [Concomitant]
     Indication: TYPE 2 DIABETES MELLITUS
     Route: 065

REACTIONS (4)
  - DEHYDRATION [None]
  - HYPOTENSION [None]
  - RENAL FAILURE ACUTE [None]
  - VOMITING [None]
